FAERS Safety Report 6523913-3 (Version None)
Quarter: 2009Q4

REPORT INFORMATION
  Report Type: 
  Country: None (occurrence: None)
  Receive Date: 20091231
  Receipt Date: 20091229
  Transmission Date: 20100525
  Serious: Yes (Hospitalization, Other)
  Sender: FDA-Public Use
  Company Number: US-BAXTER-2009BH014323

PATIENT
  Age: 52 Year
  Sex: Female
  Weight: 53 kg

DRUGS (3)
  1. VANCOMYCIN HCL [Suspect]
     Indication: OSTEOMYELITIS
     Route: 042
     Dates: start: 20081218, end: 20090101
  2. MEROPENEM [Suspect]
     Indication: OSTEOMYELITIS
     Route: 042
     Dates: start: 20081218, end: 20090101
  3. PAIN MEDICATION [Concomitant]
     Indication: POSTOPERATIVE ANALGESIA
     Route: 048
     Dates: start: 20080101

REACTIONS (4)
  - CARDIAC DISORDER [None]
  - DRUG HYPERSENSITIVITY [None]
  - HEART RATE ABNORMAL [None]
  - MITRAL VALVE PROLAPSE [None]
